FAERS Safety Report 9050958 (Version 1)
Quarter: 2013Q1

REPORT INFORMATION
  Report Type: Spontaneous
  Country: FR (occurrence: FR)
  Receive Date: 20130205
  Receipt Date: 20130205
  Transmission Date: 20140127
  Serious: Yes (Hospitalization)
  Sender: FDA-Public Use
  Company Number: FR-PFIZER INC-2013037729

PATIENT
  Age: 39 Year
  Sex: Male

DRUGS (11)
  1. VFEND [Suspect]
     Indication: ASPERGILLUS INFECTION
     Dosage: 300 MG, 2X/DAY
     Dates: start: 20120404
  2. NEORAL [Concomitant]
     Dosage: 75 MG, 2X/DAY
  3. SOLUPRED [Concomitant]
     Dosage: 80 MG, ALTERNATE DAY
  4. MAGNESIUM [Concomitant]
  5. LEDERFOLIN [Concomitant]
     Dosage: 25 MG, WEEKLY
  6. BACTRIM FORTE [Concomitant]
     Dosage: 3 DF, WEEKLY
  7. ZELITREX [Concomitant]
     Dosage: 500 MG, 2X/DAY
  8. ORACILLINE [Concomitant]
     Dosage: 1 MILLIONIU, 1X/DAY
  9. URSOLVAN [Concomitant]
     Dosage: 1 DF, 1X/DAY
  10. INEXIUM [Concomitant]
     Dosage: 20 MG, 1X/DAY
  11. DEDROGYL [Concomitant]
     Dosage: 4 DROPS DAILY

REACTIONS (1)
  - Paraesthesia [Unknown]
